FAERS Safety Report 4357450-1 (Version None)
Quarter: 2004Q2

REPORT INFORMATION
  Report Type: 
  Country: None (occurrence: None)
  Receive Date: 20040513
  Receipt Date: 20031201
  Transmission Date: 20050107
  Serious: Yes (Hospitalization)
  Sender: FDA-Public Use
  Company Number: US-BRISTOL-MYERS SQUIBB COMPANY-12446605

PATIENT
  Age: 58 Year
  Sex: Male

DRUGS (2)
  1. SERZONE [Suspect]
     Indication: DYSPHORIA
     Route: 048
     Dates: start: 19970421, end: 20031123
  2. FISH OIL [Concomitant]

REACTIONS (1)
  - GASTRIC OUTLET OBSTRUCTION [None]
